FAERS Safety Report 5887997-8 (Version None)
Quarter: 2008Q3

REPORT INFORMATION
  Report Type: 
  Country: None (occurrence: None)
  Receive Date: 20080916
  Receipt Date: 20080904
  Transmission Date: 20090109
  Serious: Yes (Hospitalization)
  Sender: FDA-Public Use
  Company Number: PAR_02334_2008

PATIENT
  Age: 42 Year
  Sex: Female

DRUGS (4)
  1. MEGACE [Suspect]
     Indication: DRUG USE FOR UNKNOWN INDICATION
     Dosage: 5 ML QD
     Dates: start: 20080425, end: 20080821
  2. PREVACID [Concomitant]
  3. DILANTIN /00017402/ [Concomitant]
  4. DAILY VITAMINS [Concomitant]

REACTIONS (3)
  - ABDOMINAL PAIN [None]
  - OESOPHAGITIS [None]
  - UPPER GASTROINTESTINAL HAEMORRHAGE [None]
